FAERS Safety Report 7801628-9 (Version None)
Quarter: 2011Q4

REPORT INFORMATION
  Report Type: 
  Country: None (occurrence: None)
  Receive Date: 20111005
  Receipt Date: 20110921
  Transmission Date: 20120403
  Serious: Yes (Hospitalization, Disabling)
  Sender: FDA-Public Use
  Company Number: 2011-3668

PATIENT
  Age: 44 Year
  Sex: Female
  Weight: 63 kg

DRUGS (2)
  1. DYSPORT [Suspect]
     Indication: MYALGIA
     Dosage: 300 UNITS (300 UNITS, SINGLE CYCLE), INTRAMUSCULAR
     Route: 030
     Dates: start: 20110813, end: 20110813
  2. DYSPORT [Suspect]
     Indication: OFF LABEL USE
     Dosage: 300 UNITS (300 UNITS, SINGLE CYCLE), INTRAMUSCULAR
     Route: 030
     Dates: start: 20110813, end: 20110813

REACTIONS (11)
  - URINARY RETENTION [None]
  - PELVIC FLOOR MUSCLE WEAKNESS [None]
  - OFF LABEL USE [None]
  - LETHARGY [None]
  - EPSTEIN-BARR VIRUS ANTIBODY POSITIVE [None]
  - MUSCLE SPASMS [None]
  - NAUSEA [None]
  - BACK PAIN [None]
  - ASTHENIA [None]
  - INFLUENZA LIKE ILLNESS [None]
  - MALAISE [None]
